FAERS Safety Report 13622946 (Version 3)
Quarter: 2017Q4

REPORT INFORMATION
  Report Type: Other
  Country: JP (occurrence: JP)
  Receive Date: 20170607
  Receipt Date: 20171212
  Transmission Date: 20180320
  Serious: Yes (Disabling, Other)
  Sender: FDA-Public Use
  Company Number: JP-TAKEDA-2017TJP011897

PATIENT
  Age: 39 Year
  Sex: Female
  Weight: 55 kg

DRUGS (3)
  1. DINAGEST [Suspect]
     Active Substance: DIENOGEST
     Indication: ENDOMETRIOSIS
     Dosage: 2 MG, QD
     Route: 048
     Dates: start: 201105
  2. PAXIL [Concomitant]
     Active Substance: PAROXETINE HYDROCHLORIDE
     Dosage: 5 MG, QD
     Route: 048
     Dates: start: 20170522
  3. ROZEREM [Suspect]
     Active Substance: RAMELTEON
     Indication: INSOMNIA
     Dosage: 8 MG, QD
     Route: 048
     Dates: start: 20170522, end: 20170525

REACTIONS (3)
  - Metrorrhagia [Not Recovered/Not Resolved]
  - Drug eruption [Not Recovered/Not Resolved]
  - Palpitations [Not Recovered/Not Resolved]

NARRATIVE: CASE EVENT DATE: 20170522
